FAERS Safety Report 4292738-4 (Version None)
Quarter: 2004Q1

REPORT INFORMATION
  Report Type: 
  Country: None (occurrence: None)
  Receive Date: 20040211
  Receipt Date: 20040203
  Transmission Date: 20041129
  Serious: Yes (Death, Hospitalization)
  Sender: FDA-Public Use
  Company Number: WAES 0402ITA00005

PATIENT
  Age: 72 Year
  Sex: Female

DRUGS (4)
  1. PRIMAXIN [Suspect]
     Indication: PATHOGEN RESISTANCE
     Dates: start: 20020601
  2. PRIMAXIN [Suspect]
     Indication: PANCREATITIS NECROTISING
     Dates: start: 20020601
  3. CIPROFLOXACIN [Concomitant]
     Indication: PATHOGEN RESISTANCE
  4. PIPERACILLIN [Concomitant]
     Indication: PATHOGEN RESISTANCE

REACTIONS (7)
  - ANTIMICROBIAL SUSCEPTIBILITY TEST RESISTANT [None]
  - DRUG INEFFECTIVE [None]
  - DRUG RESISTANCE [None]
  - ENTEROBACTER INFECTION [None]
  - MULTI-ORGAN FAILURE [None]
  - PNEUMONIA KLEBSIELLA [None]
  - RENAL FAILURE [None]
